FAERS Safety Report 10034075 (Version 4)
Quarter: 2014Q2

REPORT INFORMATION
  Report Type: Spontaneous
  Country: TR (occurrence: TR)
  Receive Date: 20140325
  Receipt Date: 20140508
  Transmission Date: 20141212
  Serious: Yes (Other)
  Sender: FDA-Public Use
  Company Number: TR-ROCHE-1370245

PATIENT
  Age: 64 Year
  Sex: Male

DRUGS (2)
  1. LUCENTIS [Suspect]
     Indication: DIABETIC RETINAL OEDEMA
     Route: 050
     Dates: start: 201312
  2. LUCENTIS [Suspect]
     Route: 050
     Dates: start: 20140212, end: 20140212

REACTIONS (2)
  - Macular hole [Not Recovered/Not Resolved]
  - Macular cyst [Unknown]
